FAERS Safety Report 14966758 (Version 1)
Quarter: 2018Q2

REPORT INFORMATION
  Report Type: Spontaneous
  Country: CR (occurrence: CR)
  Receive Date: 20180604
  Receipt Date: 20180604
  Transmission Date: 20180711
  Serious: No
  Sender: FDA-Public Use
  Company Number: CR-CHEPLA-C20170780

PATIENT
  Sex: Female

DRUGS (2)
  1. METFORMIN [Suspect]
     Active Substance: METFORMIN HYDROCHLORIDE
     Indication: WEIGHT DECREASED
     Dosage: DOSE AND FREQUENCY NOT REPORTED
     Route: 065
  2. ORLISTAT. [Suspect]
     Active Substance: ORLISTAT
     Indication: WEIGHT DECREASED
     Dosage: DOSE AND FREQUENCY NOT REPORTED
     Route: 065

REACTIONS (3)
  - Steatorrhoea [Recovered/Resolved]
  - Malaise [Unknown]
  - Drug ineffective [Unknown]
